FAERS Safety Report 18175855 (Version 2)
Quarter: 2020Q3

REPORT INFORMATION
  Report Type: Spontaneous
  Country: JP (occurrence: JP)
  Receive Date: 20200820
  Receipt Date: 20200825
  Transmission Date: 20201103
  Serious: Yes (Other)
  Sender: FDA-Public Use
  Company Number: JP-ROCHE-2662944

PATIENT
  Sex: Female

DRUGS (2)
  1. ISODINE [Suspect]
     Active Substance: POVIDONE-IODINE
     Indication: INFECTION PROPHYLAXIS
     Dosage: UNK
     Route: 061
  2. LUCENTIS [Suspect]
     Active Substance: RANIBIZUMAB
     Indication: MYOPIA
     Route: 050
     Dates: start: 202005

REACTIONS (4)
  - Metamorphopsia [Unknown]
  - Corneal exfoliation [Recovering/Resolving]
  - Retinal haemorrhage [Unknown]
  - Visual acuity reduced [Unknown]

NARRATIVE: CASE EVENT DATE: 20200511
